FAERS Safety Report 23293120 (Version 2)
Quarter: 2023Q4

REPORT INFORMATION
  Report Type: Spontaneous
  Country: SA (occurrence: SA)
  Receive Date: 20231213
  Receipt Date: 20231220
  Transmission Date: 20240110
  Serious: Yes (Death, Hospitalization)
  Sender: FDA-Public Use
  Company Number: SA-Merck Healthcare KGaA-2023492231

PATIENT
  Age: 49 Year
  Sex: Female

DRUGS (2)
  1. MAVENCLAD [Suspect]
     Active Substance: CLADRIBINE
     Indication: Relapsing-remitting multiple sclerosis
     Dosage: FIRST CYCLE THERAPY.
     Dates: end: 20220224
  2. MAVENCLAD [Suspect]
     Active Substance: CLADRIBINE
     Dosage: SECOND CYCLE THERAPY.
     Dates: end: 20230223

REACTIONS (3)
  - Cardio-respiratory arrest [Fatal]
  - Myocardial infarction [Fatal]
  - Coronary artery dissection [Fatal]
